FAERS Safety Report 6202459-6 (Version None)
Quarter: 2009Q2

REPORT INFORMATION
  Report Type: 
  Country: None (occurrence: None)
  Receive Date: 20090526
  Receipt Date: 20090525
  Transmission Date: 20091009
  Serious: Yes (Death, Hospitalization, Other)
  Sender: FDA-Public Use
  Company Number: US-PFIZER INC-2009179664

PATIENT
  Sex: Female

DRUGS (9)
  1. ZYVOX [Suspect]
     Indication: DIABETIC FOOT INFECTION
     Dosage: 600 MG, 2X/DAY
     Dates: start: 20081210
  2. ACTONEL [Concomitant]
     Dosage: 35 MG, WEEKLY
  3. ACETYLSALICYLIC ACID [Concomitant]
     Dosage: 325 MG, WEEKLY
  4. KLONOPIN [Concomitant]
     Dosage: 0.5 MG, AS NEEDED
  5. LASIX [Concomitant]
     Dosage: 40 MG, 1X/DAY
  6. LIPITOR [Concomitant]
     Dosage: 40 MG, 1X/DAY
  7. LOPRESSOR [Concomitant]
     Dosage: 25 MG, 2X/DAY
     Route: 048
  8. PAXIL [Concomitant]
     Dosage: UNK
  9. SYNTHROID [Concomitant]
     Dosage: 112 UG, 1X/DAY
     Route: 048

REACTIONS (8)
  - ACUTE HEPATIC FAILURE [None]
  - ACUTE RESPIRATORY FAILURE [None]
  - ANAEMIA [None]
  - LACTIC ACIDOSIS [None]
  - MULTI-ORGAN FAILURE [None]
  - RENAL FAILURE ACUTE [None]
  - SEPTIC SHOCK [None]
  - THROMBOCYTOPENIA [None]
